FAERS Safety Report 20382759 (Version 1)
Quarter: 2022Q1

REPORT INFORMATION
  Report Type: Spontaneous
  Country: GB (occurrence: GB)
  Receive Date: 20220127
  Receipt Date: 20220127
  Transmission Date: 20220423
  Serious: Yes (Life-Threatening, Other)
  Sender: FDA-Public Use
  Company Number: GB-EMA-DD-20200615-kumarsingh_a-165016

PATIENT
  Age: 48 Year
  Sex: Female

DRUGS (9)
  1. NORETHINDRONE [Suspect]
     Active Substance: NORETHINDRONE
     Indication: Menopause
     Route: 065
  2. MIRENA [Suspect]
     Active Substance: LEVONORGESTREL
     Indication: Menopause
     Route: 065
  3. ESTRADIOL [Suspect]
     Active Substance: ESTRADIOL
     Indication: Menopause
     Dosage: 2 DOSAGE FORMS DAILY; THERAPY START DATE :ASKU, THERAPY END DATE: ASKU (50 MCG PER 24 HR, 2 PATCHES
     Route: 062
  4. ESTRADIOL [Suspect]
     Active Substance: ESTRADIOL
     Dosage: THERAPY START DATE :ASKU, THERAPY END DATE: ASKU
     Route: 065
  5. ESTRADIOL [Suspect]
     Active Substance: ESTRADIOL
     Indication: Menopause
     Dosage: 2 DOSAGE FORMS DAILY;
     Route: 062
  6. ESTRADIOL\NORETHINDRONE ACETATE [Suspect]
     Active Substance: ESTRADIOL\NORETHINDRONE ACETATE
     Indication: Menopause
     Dosage: UNK,THERAPY START DATE :ASKU, THERAPY END DATE: ASKU
     Route: 065
  7. ESTRADIOL\NORETHINDRONE ACETATE [Suspect]
     Active Substance: ESTRADIOL\NORETHINDRONE ACETATE
     Indication: Menopause
     Route: 065
  8. AMITRIPTYLINE                      /00002202/ [Concomitant]
     Indication: Migraine
     Route: 065
  9. SUMATRIPTAN [Concomitant]
     Active Substance: SUMATRIPTAN
     Indication: Migraine
     Route: 065

REACTIONS (9)
  - Product quality issue [Unknown]
  - Arthralgia [Unknown]
  - Product supply issue [Unknown]
  - Myalgia [Unknown]
  - Suicidal ideation [Unknown]
  - Medication error [Unknown]
  - Off label use [Unknown]
  - Wrong technique in product usage process [Unknown]
  - Depression suicidal [Unknown]

NARRATIVE: CASE EVENT DATE: 20200512
